FAERS Safety Report 4862400-5 (Version None)
Quarter: 2005Q4

REPORT INFORMATION
  Report Type: 
  Country: None (occurrence: None)
  Receive Date: 20051221
  Receipt Date: 20051216
  Transmission Date: 20060501
  Serious: Yes (Hospitalization)
  Sender: FDA-Public Use
  Company Number: JP-JNJFOC-20051103313

PATIENT
  Age: 73 Year
  Sex: Female

DRUGS (13)
  1. OFLOCET [Suspect]
     Indication: DRUG USE FOR UNKNOWN INDICATION
     Route: 048
     Dates: start: 20050817, end: 20050820
  2. COUMADIN [Interacting]
     Indication: PHLEBITIS
     Route: 048
     Dates: end: 20050820
  3. ASPEGIC 325 [Interacting]
     Indication: DRUG USE FOR UNKNOWN INDICATION
     Route: 048
     Dates: end: 20050820
  4. VASTEN [Concomitant]
     Route: 048
  5. FUROSEMIDE [Concomitant]
     Route: 048
     Dates: start: 20050801
  6. TAREG [Concomitant]
     Route: 048
     Dates: start: 20050801
  7. PHYSIOTENS [Concomitant]
     Route: 048
  8. CHRONADALTE [Concomitant]
     Route: 048
  9. LEXOMIL [Concomitant]
  10. FORADIL [Concomitant]
     Route: 048
  11. FLIXOTIDE [Concomitant]
     Route: 048
  12. ATROVENT [Concomitant]
     Route: 048
  13. PREDNISOLONE [Concomitant]
     Route: 048

REACTIONS (4)
  - DRUG INTERACTION [None]
  - INTERNATIONAL NORMALISED RATIO INCREASED [None]
  - PROTHROMBIN LEVEL DECREASED [None]
  - RECTAL HAEMORRHAGE [None]
